FAERS Safety Report 6975710 (Version 3)
Quarter: 2013Q1

REPORT INFORMATION
  Report Type: Spontaneous
  Country: DE (occurrence: DE)
  Receive Date: 20090423
  Receipt Date: 20130212
  Transmission Date: 20140127
  Serious: Yes (Death, Life-Threatening)
  Sender: FDA-Public Use
  Company Number: DE-RANBAXY-2009RR-23500

PATIENT
  Age: 29 Year
  Sex: Male
  Weight: 85 kg

DRUGS (5)
  1. IBUPROFEN [Suspect]
     Indication: PAIN
     Dosage: 600 MG, UNK
     Route: 048
     Dates: start: 20080912, end: 20080920
  2. KOGENATE [Concomitant]
     Indication: FACTOR VIII DEFICIENCY
     Route: 040
  3. PEGINTRON [Concomitant]
     Indication: HEPATITIS C
     Dosage: UNK
     Route: 058
     Dates: start: 200804, end: 20081003
  4. REBETOL [Concomitant]
     Indication: HEPATITIS C
     Dosage: UNK
     Route: 048
     Dates: start: 200804
  5. REBETOL [Concomitant]
     Dosage: 200 MG,2-0-3
     Route: 048
     Dates: start: 20081016

REACTIONS (1)
  - Gastrointestinal haemorrhage [Recovered/Resolved]
